FAERS Safety Report 16033001 (Version 1)
Quarter: 2019Q1

REPORT INFORMATION
  Report Type: Spontaneous
  Country: IT (occurrence: IT)
  Receive Date: 20190305
  Receipt Date: 20190305
  Transmission Date: 20190418
  Serious: Yes (Hospitalization)
  Sender: FDA-Public Use
  Company Number: IT-ACCORD-109874

PATIENT
  Age: 87 Year
  Sex: Male

DRUGS (9)
  1. MINITRAN [Concomitant]
     Active Substance: NITROGLYCERIN
  2. TAVOR [Concomitant]
  3. PRAVASELECT [Concomitant]
     Active Substance: PRAVASTATIN SODIUM
     Route: 048
  4. FUROSEMIDE. [Suspect]
     Active Substance: FUROSEMIDE
     Indication: PRODUCT USED FOR UNKNOWN INDICATION
     Route: 048
     Dates: start: 20080430, end: 20080504
  5. AVODART [Concomitant]
     Active Substance: DUTASTERIDE
  6. TICLOPIDINE [Concomitant]
     Active Substance: TICLOPIDINE
     Route: 048
  7. PERIDON [Concomitant]
     Active Substance: DOMPERIDONE
     Route: 048
  8. PANTORC [Concomitant]
     Active Substance: PANTOPRAZOLE SODIUM
  9. TAREG [Concomitant]
     Active Substance: VALSARTAN
     Route: 048

REACTIONS (3)
  - Renal failure [Recovered/Resolved]
  - Hypovolaemia [Recovered/Resolved]
  - Orthostatic hypotension [Recovered/Resolved]

NARRATIVE: CASE EVENT DATE: 20080501
